FAERS Safety Report 8465277-4 (Version None)
Quarter: 2012Q2

REPORT INFORMATION
  Report Type: 
  Country: None (occurrence: None)
  Receive Date: 20120626
  Receipt Date: 20120507
  Transmission Date: 20120825
  Serious: No
  Sender: FDA-Public Use
  Company Number: US-ASTRAZENECA-2012SE27617

PATIENT
  Age: 56 Year
  Sex: Female

DRUGS (2)
  1. NEXIUM [Suspect]
     Route: 048
  2. SEROQUEL [Suspect]
     Route: 048

REACTIONS (9)
  - BACK PAIN [None]
  - HYPERCHLORHYDRIA [None]
  - DIZZINESS [None]
  - CHEST DISCOMFORT [None]
  - CHEST PAIN [None]
  - MALAISE [None]
  - DRUG DOSE OMISSION [None]
  - VOMITING [None]
  - DYSPEPSIA [None]
